FAERS Safety Report 23275045 (Version 1)
Quarter: 2023Q4

REPORT INFORMATION
  Report Type: Report from Study
  Country: GB (occurrence: GB)
  Receive Date: 20231208
  Receipt Date: 20231208
  Transmission Date: 20240110
  Serious: Yes (Hospitalization, Other)
  Sender: FDA-Public Use
  Company Number: GB-UCBSA-2023056733

PATIENT
  Age: 33 Year
  Sex: Female

DRUGS (2)
  1. BIMEKIZUMAB [Suspect]
     Active Substance: BIMEKIZUMAB
     Indication: Psoriasis
     Dosage: UNK, EV 8 WEEKS
     Route: 058
     Dates: start: 20220326, end: 20230620
  2. BIMEKIZUMAB [Suspect]
     Active Substance: BIMEKIZUMAB
     Indication: Erythrodermic psoriasis
     Dosage: UNK, EV 4 WEEKS
     Route: 058
     Dates: start: 202311

REACTIONS (12)
  - Psoriasis [Recovering/Resolving]
  - Erythrodermic psoriasis [Recovering/Resolving]
  - Skin infection [Recovering/Resolving]
  - Purulent discharge [Recovering/Resolving]
  - Acute kidney injury [Recovered/Resolved]
  - Deep vein thrombosis [Recovered/Resolved]
  - Joint swelling [Unknown]
  - Liver function test abnormal [Recovered/Resolved]
  - Weight decreased [Recovering/Resolving]
  - Lethargy [Unknown]
  - Off label use [Unknown]
  - Staphylococcal infection [Unknown]

NARRATIVE: CASE EVENT DATE: 20220326
